FAERS Safety Report 25429458 (Version 1)
Quarter: 2025Q2

REPORT INFORMATION
  Report Type: Spontaneous
  Country: US (occurrence: US)
  Receive Date: 20250612
  Receipt Date: 20250612
  Transmission Date: 20250716
  Serious: Yes (Other)
  Sender: ALEXION PHARMACEUTICALS
  Company Number: US-AstraZeneca-CH-00883737A

PATIENT

DRUGS (1)
  1. CRESTOR [Suspect]
     Active Substance: ROSUVASTATIN CALCIUM
     Route: 065

REACTIONS (12)
  - Pain [Unknown]
  - Off label use [Unknown]
  - Muscle spasms [Unknown]
  - Musculoskeletal stiffness [Unknown]
  - Myalgia [Unknown]
  - Food craving [Unknown]
  - Chest crushing [Unknown]
  - Intentional dose omission [Unknown]
  - Myopathy [Unknown]
  - Hypokinesia [Unknown]
  - Myositis [Unknown]
  - Feeling abnormal [Unknown]
